FAERS Safety Report 19707230 (Version 3)
Quarter: 2021Q4

REPORT INFORMATION
  Report Type: Spontaneous
  Country: DE (occurrence: DE)
  Receive Date: 20210817
  Receipt Date: 20211103
  Transmission Date: 20220303
  Serious: Yes (Hospitalization, Other)
  Sender: FDA-Public Use
  Company Number: DE-BRISTOL-MYERS SQUIBB COMPANY-BMS-2021-073491

PATIENT
  Age: 63 Year
  Sex: Male
  Weight: 175 kg

DRUGS (5)
  1. OPDIVO [Suspect]
     Active Substance: NIVOLUMAB
     Indication: Non-small cell lung cancer metastatic
     Dosage: 360 MILLIGRAM, Q3WK
     Route: 042
     Dates: start: 20201201, end: 20210617
  2. YERVOY [Suspect]
     Active Substance: IPILIMUMAB
     Indication: Non-small cell lung cancer metastatic
     Dosage: 1 MILLIGRAM/KILOGRAM = 86 MG, Q6WK
     Route: 042
     Dates: start: 20201201, end: 20210617
  3. CARBOPLATIN [Concomitant]
     Active Substance: CARBOPLATIN
     Indication: Non-small cell lung cancer metastatic
     Dosage: AUC5, 2 CYCLES
     Route: 065
     Dates: start: 20201201
  4. ALIMTA [Concomitant]
     Active Substance: PEMETREXED DISODIUM
     Indication: Non-small cell lung cancer metastatic
     Dosage: 500 MILLIGRAM/SQ. METER
     Route: 065
     Dates: start: 20201201
  5. ASTRAZENECA COVID-19 VACCINE [Concomitant]
     Active Substance: AZD-1222
     Indication: Prophylaxis
     Dosage: UNK
     Route: 065
     Dates: start: 20210422

REACTIONS (2)
  - Pneumonitis [Unknown]
  - COVID-19 pneumonia [Unknown]
